FAERS Safety Report 18343176 (Version 2)
Quarter: 2020Q4

REPORT INFORMATION
  Report Type: Spontaneous
  Country: DE (occurrence: DE)
  Receive Date: 20201005
  Receipt Date: 20201009
  Transmission Date: 20210113
  Serious: Yes (Other)
  Sender: FDA-Public Use
  Company Number: DE-DRREDDYS-GER/GER/20/0127563

PATIENT
  Age: 79 Year
  Sex: Male
  Weight: 65 kg

DRUGS (19)
  1. LAMOTRIGINE. [Suspect]
     Active Substance: LAMOTRIGINE
     Indication: EPILEPSY
     Dosage: 150-0-1150MG
     Dates: start: 20180211
  2. LAMOTRIGINE. [Suspect]
     Active Substance: LAMOTRIGINE
     Dates: start: 20171107
  3. ASS ABZ PROTECT 100 MG MAGENSAFTRESISTENTE TABLETTEN [Concomitant]
     Indication: THROMBOSIS PROPHYLAXIS
  4. SIMVA BASICS 20 MG FILMTABLETTEN [Concomitant]
     Indication: BLOOD CHOLESTEROL
     Dosage: 0-0-1 WITH OR AFTER EATING
  5. LAMOTRIGINE. [Suspect]
     Active Substance: LAMOTRIGINE
     Dosage: 125-0-125
     Dates: start: 20171220
  6. ZOPICLODURA 7,5 MG FILMTABLETTEN [Concomitant]
     Indication: SLEEP DISORDER
  7. RAMIPRIL-ISIS 2,5 MG TABLETTEN [Concomitant]
     Active Substance: RAMIPRIL
     Indication: BLOOD PRESSURE MEASUREMENT
     Dates: start: 20190705
  8. TASIGNA [Concomitant]
     Active Substance: NILOTINIB
     Indication: PRODUCT USED FOR UNKNOWN INDICATION
     Dates: start: 201310
  9. GLIVEC 400 MG FILMTABLETTEN [Concomitant]
     Indication: CHRONIC MYELOID LEUKAEMIA
     Dosage: 4X100MG/TAG
     Dates: start: 20200211
  10. LEVETIRACETAM. [Suspect]
     Active Substance: LEVETIRACETAM
     Indication: EPILEPSY
     Dosage: 500 - 0 - 750MG/TAG
     Route: 048
     Dates: start: 20190913
  11. LAMOTRIGINE. [Suspect]
     Active Substance: LAMOTRIGINE
     Dosage: 200 - 0 - 200
     Dates: start: 20171107
  12. GLIVEC 400 MG FILMTABLETTEN [Concomitant]
     Dosage: 0-0-400
     Dates: start: 20140701, end: 20141222
  13. LAMOTRIGINE. [Suspect]
     Active Substance: LAMOTRIGINE
     Dosage: 75-0-75MG
     Dates: start: 20170207
  14. TAVOR EXPIDET 1,0 T?FELCHEN [Concomitant]
     Indication: PRODUCT USED FOR UNKNOWN INDICATION
     Dosage: NUR IM NOTFALL BEI EINER ATTACKE?ONLY IN AN EMERGENCY DURING AN ATTACK
  15. LEVETIRACETAM. [Suspect]
     Active Substance: LEVETIRACETAM
     Dosage: 500 - 0 - 1000
     Route: 048
     Dates: start: 20191030
  16. LEVETIRACETAM. [Suspect]
     Active Substance: LEVETIRACETAM
     Dosage: 500-0-750
     Dates: start: 20200219
  17. LAMOTRIGINE. [Suspect]
     Active Substance: LAMOTRIGINE
     Dosage: 25 - 25 - 25MG
     Dates: start: 20161108
  18. LAMOTRIGINE. [Suspect]
     Active Substance: LAMOTRIGINE
     Dosage: 0-0-25
     Dates: start: 20120626
  19. ASS ABZ PROTECT 100 MG MAGENSAFTRESISTENTE TABLETTEN [Concomitant]
     Indication: PROPHYLAXIS
     Dosage: 1-0-0 NACH DEM ESSEN

REACTIONS (7)
  - Dizziness [Not Recovered/Not Resolved]
  - Depression [Not Recovered/Not Resolved]
  - Basal cell carcinoma [Not Recovered/Not Resolved]
  - Gait disturbance [Not Recovered/Not Resolved]
  - Fatigue [Not Recovered/Not Resolved]
  - Adverse reaction [Unknown]
  - Vertigo positional [Not Recovered/Not Resolved]

NARRATIVE: CASE EVENT DATE: 20190920
